FAERS Safety Report 4916845-5 (Version None)
Quarter: 2006Q1

REPORT INFORMATION
  Report Type: 
  Country: None (occurrence: None)
  Receive Date: 20060220
  Receipt Date: 20060210
  Transmission Date: 20060701
  Serious: Yes (Death)
  Sender: FDA-Public Use
  Company Number: GB-NOVOPROD-250825

PATIENT
  Age: 78 Year
  Sex: Male
  Weight: 77 kg

DRUGS (30)
  1. ENOXIMONE [Concomitant]
     Dosage: 400 UG, QD
     Route: 042
     Dates: start: 20060131
  2. EPINEPHRINE [Concomitant]
     Dosage: 5 UG, QD
     Route: 042
     Dates: start: 20060131
  3. ACTRAPID [Concomitant]
     Dosage: 50 IU, QD
     Route: 042
     Dates: start: 20060130
  4. TRANEXAMIC ACID [Concomitant]
     Dosage: 2 G, QD
     Route: 042
     Dates: start: 20060130, end: 20060130
  5. HEPARIN [Concomitant]
     Dosage: 23000 IU, QD
     Route: 042
     Dates: start: 20060130, end: 20060130
  6. PROTAMINE SULFATE [Concomitant]
     Dosage: 150 MG, QD
     Route: 042
     Dates: start: 20060130, end: 20060130
  7. MIDAZOLAM [Concomitant]
     Dosage: 10 MG, QD
     Route: 042
     Dates: start: 20060130, end: 20060130
  8. PANCURONIUM [Concomitant]
     Dosage: 12 MG, QD
     Route: 042
     Dates: start: 20060130, end: 20060130
  9. PHENYLEPHRINE [Concomitant]
     Dosage: .5 MG, QD
     Route: 042
     Dates: start: 20060130, end: 20060130
  10. ATROPINE [Concomitant]
     Dosage: .6 MG, QD
     Route: 042
     Dates: start: 20060130, end: 20060130
  11. CALCIUM CHLORIDE ^BIOTIKA^ [Concomitant]
     Route: 042
     Dates: start: 20060130, end: 20060130
  12. POTASSIUM CHLORIDE [Concomitant]
     Dosage: 20 MMOL, QD
     Route: 042
     Dates: start: 20060130, end: 20060130
  13. GENTAMYCIN-MP [Concomitant]
     Dosage: 2 MG/KG, QD
     Route: 042
     Dates: start: 20060130, end: 20060130
  14. ANTIDIURETIC HORMONE [Concomitant]
     Dosage: 40 U, QD
     Route: 042
     Dates: start: 20060131
  15. NOVOSEVEN [Suspect]
     Indication: POST PROCEDURAL HAEMORRHAGE
     Dosage: 40 UG/KG, UNK
     Route: 042
     Dates: start: 20060130, end: 20060130
  16. FENTANYL [Concomitant]
     Dosage: .5 MG, UNK
     Route: 042
     Dates: start: 20060130, end: 20060130
  17. PROPOFOL [Concomitant]
     Dosage: 10 MG/ML, QD
     Route: 042
     Dates: start: 20060130
  18. PHENTOLAMINE MESYLATE [Concomitant]
     Dosage: .5 MG, QD
     Route: 042
     Dates: start: 20060130, end: 20060130
  19. POTASSIUM [Concomitant]
     Dosage: 10 MMOL, UNK
     Route: 042
     Dates: start: 20060130, end: 20060130
  20. ACETAMINOPHEN [Concomitant]
     Dosage: 1 G, QD
     Route: 048
     Dates: start: 20060130
  21. SENNA [Concomitant]
     Dosage: 15 MG, QD
     Route: 048
     Dates: start: 20060131
  22. VANCOMYCIN [Concomitant]
     Dosage: 1 MG, QD
     Route: 042
     Dates: start: 20060130, end: 20060130
  23. MORPHINE [Concomitant]
     Dosage: 7.5 MG, QD
     Route: 030
     Dates: start: 20060130, end: 20060130
  24. MORPHINE [Concomitant]
     Dosage: 1 MG, QD
     Route: 042
     Dates: start: 20060131
  25. HYOSCINE HBR HYT [Concomitant]
     Dosage: .5 MG, QD
     Route: 030
     Dates: start: 20060130, end: 20060130
  26. LASIX [Concomitant]
     Dosage: 40 MG, QD
     Route: 042
     Dates: start: 20060130, end: 20060130
  27. FRUSEMIDE [Concomitant]
     Dosage: 40 MG, QD
     Route: 048
     Dates: start: 20060131
  28. ENOXAPARIN SODIUM [Concomitant]
     Dosage: 40 MG, QD
     Route: 042
     Dates: start: 20060131
  29. NORADRENALINE [Concomitant]
     Dosage: 8 MG, QD
     Route: 042
     Dates: start: 20060130, end: 20060130
  30. DOPAMINE [Concomitant]
     Dosage: 400 UG, QD
     Route: 042
     Dates: start: 20060130, end: 20060130

REACTIONS (6)
  - ATRIAL FIBRILLATION [None]
  - GENERAL PHYSICAL HEALTH DETERIORATION [None]
  - INTESTINAL INFARCTION [None]
  - INTESTINAL ISCHAEMIA [None]
  - OXYGEN SATURATION DECREASED [None]
  - TACHYPNOEA [None]
